FAERS Safety Report 7974050-2 (Version None)
Quarter: 2011Q4

REPORT INFORMATION
  Report Type: 
  Country: None (occurrence: None)
  Receive Date: 20111213
  Receipt Date: 20111205
  Transmission Date: 20120403
  Serious: Yes (Other)
  Sender: FDA-Public Use
  Company Number: SK-GLAXOSMITHKLINE-B0768503A

PATIENT
  Sex: Male

DRUGS (3)
  1. TROBALT [Suspect]
     Indication: EPILEPSY
     Dosage: 450MG PER DAY
     Route: 065
     Dates: end: 20111201
  2. TOPIRAMATE [Concomitant]
     Indication: EPILEPSY
     Dosage: 600MG PER DAY
     Route: 065
  3. OXCARBAZEPINE [Concomitant]
     Indication: EPILEPSY
     Dosage: 250MG PER DAY
     Route: 065

REACTIONS (3)
  - ASTHENIA [None]
  - HALLUCINATION [None]
  - ILL-DEFINED DISORDER [None]
